FAERS Safety Report 10406230 (Version 1)
Quarter: 2014Q1

REPORT INFORMATION
  Report Type: Spontaneous
  Country: US (occurrence: None)
  Receive Date: 20140228
  Receipt Date: 20140228
  Transmission Date: 20141002
  Serious: No
  Sender: FDA-Public Use
  Company Number: 224935LEO

PATIENT
  Age: 72 Year
  Sex: Male

DRUGS (3)
  1. PICATO (INGENOL MEBUTATE) (0.015 %, GEL) [Suspect]
     Indication: PRECANCEROUS SKIN LESION
     Dosage: ONCE DAILY X 3 DAYS
     Route: 061
     Dates: start: 20131110, end: 20131112
  2. METFORMIN [Concomitant]
  3. LISINOPRIL [Concomitant]

REACTIONS (6)
  - Skin irritation [None]
  - Application site scab [None]
  - Application site dryness [None]
  - Application site pruritus [None]
  - Incorrect dose administered [None]
  - Drug administered at inappropriate site [None]
